FAERS Safety Report 9466634 (Version 1)
Quarter: 2013Q3

REPORT INFORMATION
  Report Type: Spontaneous
  Country: US (occurrence: US)
  Receive Date: 20130820
  Receipt Date: 20130820
  Transmission Date: 20140515
  Serious: Yes (Other)
  Sender: FDA-Public Use
  Company Number: US-ABBOTT-13P-163-1132532-00

PATIENT
  Sex: Male

DRUGS (20)
  1. ANDROGEL [Suspect]
     Indication: PRODUCT USED FOR UNKNOWN INDICATION
  2. ANDROGEL [Suspect]
     Indication: PRODUCT USED FOR UNKNOWN INDICATION
  3. LYRICA [Suspect]
     Indication: NEURALGIA
     Route: 048
  4. VITAMIN C [Concomitant]
     Dosage: 2000 MG DAILY
     Route: 048
  5. CALCIUM 600 + MINERALS [Concomitant]
     Dosage: 600-200 MG DAILY
     Route: 048
     Dates: start: 20120925
  6. VITAMIN D3 [Concomitant]
     Dosage: 2000 UNITS DAILY
     Route: 048
  7. TRANXENE-T [Concomitant]
     Dosage: EVERY 6 HOURS AS NEEDED
     Route: 048
     Dates: start: 20130227
  8. TAZTIA XT [Concomitant]
     Route: 048
     Dates: start: 20120425
  9. COLACE [Concomitant]
     Route: 048
     Dates: start: 20130227
  10. KRILL OIL [Concomitant]
     Route: 048
  11. MAGNESIUM [Concomitant]
     Dosage: 1000 MG DAILY
     Route: 048
  12. FISH OIL CONCENTRATE [Concomitant]
     Dosage: 220 MG DAILY
     Route: 048
     Dates: start: 20120425
  13. PRILOSEC [Concomitant]
     Route: 048
     Dates: start: 20120425
  14. ROXICODONE [Concomitant]
     Dosage: EVERY 4 HOURS AS NEEDED
     Route: 048
  15. PRAVACHOL [Concomitant]
     Dosage: IN THE EVENING
     Route: 048
     Dates: start: 20130625
  16. MAXZIDE [Concomitant]
     Dosage: 37.5-25 MG
     Route: 048
     Dates: start: 20130626
  17. UBIQUINOL [Concomitant]
     Route: 048
  18. COUMADIN [Concomitant]
     Dosage: 1/2 TO 1 TABLET AS DIRECTED
     Route: 048
     Dates: start: 20130411
  19. ZINC [Concomitant]
     Route: 048
  20. TESTOSTERONE [Concomitant]
     Indication: PRODUCT USED FOR UNKNOWN INDICATION
     Dosage: EVERY AM
     Route: 061
     Dates: start: 20130626

REACTIONS (4)
  - Spinal column stenosis [Unknown]
  - Fatigue [Unknown]
  - Drug effect decreased [Unknown]
  - Deep vein thrombosis [Unknown]
